FAERS Safety Report 7731922-1 (Version None)
Quarter: 2011Q3

REPORT INFORMATION
  Report Type: 
  Country: None (occurrence: None)
  Receive Date: 20110906
  Receipt Date: 20110715
  Transmission Date: 20111222
  Serious: No
  Sender: FDA-Public Use
  Company Number: US-AMGEN-USASP2011036186

PATIENT
  Age: 71 Year
  Sex: Male

DRUGS (2)
  1. PERCOCET [Concomitant]
  2. XGEVA [Suspect]
     Indication: PROSTATE CANCER METASTATIC
     Dosage: 120 MG, Q4WK
     Dates: start: 20110706

REACTIONS (3)
  - HOT FLUSH [None]
  - CHILLS [None]
  - DYSPNOEA [None]
